FAERS Safety Report 10997029 (Version 1)
Quarter: 2015Q1

REPORT INFORMATION
  Report Type: Spontaneous
  Country: US (occurrence: None)
  Receive Date: 20150331
  Receipt Date: 20150331
  Transmission Date: 20150721
  Serious: Yes (Other)
  Sender: FDA-Public Use
  Company Number: 2014-28023

PATIENT
  Age: 75 Year
  Sex: Male
  Weight: 108 kg

DRUGS (4)
  1. VISTARIL (HYDROXYZINE HYDROCHLORIDE) [Concomitant]
     Active Substance: HYDROXYZINE HYDROCHLORIDE
  2. NORCO [Suspect]
     Active Substance: ACETAMINOPHEN\HYDROCODONE BITARTRATE
     Indication: ARTHRALGIA
  3. XANAX [Concomitant]
     Active Substance: ALPRAZOLAM
  4. ELAVIL [Concomitant]
     Active Substance: AMITRIPTYLINE HYDROCHLORIDE

REACTIONS (5)
  - Feeling abnormal [None]
  - Drug dependence [None]
  - Phobia of driving [None]
  - Drug withdrawal syndrome [None]
  - Adverse drug reaction [None]
